FAERS Safety Report 7379908-3 (Version None)
Quarter: 2011Q1

REPORT INFORMATION
  Report Type: 
  Country: None (occurrence: None)
  Receive Date: 20110329
  Receipt Date: 20110320
  Transmission Date: 20110831
  Serious: Yes (Other)
  Sender: FDA-Public Use
  Company Number: US-RB-023640-11

PATIENT
  Age: 51 Year
  Sex: Female

DRUGS (2)
  1. BONIVA CALCIUM [Concomitant]
  2. MUCINEX DM [Suspect]
     Dosage: DRUG TAKEN ON 18-MAR-2011
     Route: 048

REACTIONS (6)
  - ASTHENIA [None]
  - HEART RATE INCREASED [None]
  - DIARRHOEA [None]
  - PALPITATIONS [None]
  - NAUSEA [None]
  - BLOOD PRESSURE INCREASED [None]
